FAERS Safety Report 10465713 (Version 4)
Quarter: 2015Q3

REPORT INFORMATION
  Report Type: Spontaneous
  Country: US (occurrence: US)
  Receive Date: 20140919
  Receipt Date: 20150713
  Transmission Date: 20151125
  Serious: Yes (Hospitalization, Other)
  Sender: FDA-Public Use
  Company Number: US-GLAXOSMITHKLINE-A1089486A

PATIENT
  Age: 66 Year
  Sex: Female

DRUGS (21)
  1. CELEBREX [Concomitant]
     Active Substance: CELECOXIB
  2. XALATAN [Concomitant]
     Active Substance: LATANOPROST
  3. ZOLOFT [Concomitant]
     Active Substance: SERTRALINE HYDROCHLORIDE
  4. ADVAIR HFA [Suspect]
     Active Substance: FLUTICASONE PROPIONATE\SALMETEROL XINAFOATE
     Indication: ASTHMA
     Dosage: 1 DF, BID
     Route: 055
     Dates: start: 1995
  5. ADVAIR HFA [Suspect]
     Active Substance: FLUTICASONE PROPIONATE\SALMETEROL XINAFOATE
     Indication: CHRONIC OBSTRUCTIVE PULMONARY DISEASE
  6. ADVAIR DISKUS [Suspect]
     Active Substance: FLUTICASONE PROPIONATE\SALMETEROL XINAFOATE
     Indication: ASTHMA
     Dosage: 1 PUFF(S), BID
     Route: 055
  7. VENTOLIN [Suspect]
     Active Substance: ALBUTEROL SULFATE
     Indication: ASTHMA
     Dosage: 1 DF, PRN
     Route: 055
     Dates: start: 2000
  8. VENTOLIN [Suspect]
     Active Substance: ALBUTEROL SULFATE
     Indication: CHRONIC OBSTRUCTIVE PULMONARY DISEASE
  9. VENTOLIN HFA [Suspect]
     Active Substance: ALBUTEROL SULFATE
     Indication: ASTHMA
     Dosage: 2 PUFF(S), PRN
     Route: 055
  10. VENTOLIN HFA [Suspect]
     Active Substance: ALBUTEROL SULFATE
     Indication: CHRONIC OBSTRUCTIVE PULMONARY DISEASE
  11. VENTOLIN HFA [Suspect]
     Active Substance: ALBUTEROL SULFATE
     Indication: EMPHYSEMA
  12. BACLOFEN. [Concomitant]
     Active Substance: BACLOFEN
  13. XANAX [Concomitant]
     Active Substance: ALPRAZOLAM
  14. FLEXERIL [Concomitant]
     Active Substance: CYCLOBENZAPRINE HYDROCHLORIDE
  15. DIGOXIN. [Concomitant]
     Active Substance: DIGOXIN
  16. OXYCODONE [Concomitant]
     Active Substance: OXYCODONE
  17. ADVAIR DISKUS [Suspect]
     Active Substance: FLUTICASONE PROPIONATE\SALMETEROL XINAFOATE
     Indication: EMPHYSEMA
  18. ADVAIR DISKUS [Suspect]
     Active Substance: FLUTICASONE PROPIONATE\SALMETEROL XINAFOATE
     Indication: CHRONIC OBSTRUCTIVE PULMONARY DISEASE
  19. METOPROLOL [Concomitant]
     Active Substance: METOPROLOL
  20. TRAZODONE [Concomitant]
     Active Substance: TRAZODONE HYDROCHLORIDE
  21. SINEQUAN [Concomitant]
     Active Substance: DOXEPIN HYDROCHLORIDE

REACTIONS (20)
  - Abasia [Recovered/Resolved]
  - Amnesia [Not Recovered/Not Resolved]
  - Pneumonia [Recovered/Resolved]
  - Stomatitis [Recovered/Resolved]
  - Road traffic accident [Recovered/Resolved]
  - Loss of consciousness [Recovered/Resolved]
  - Rehabilitation therapy [Unknown]
  - Dysgraphia [Unknown]
  - Fracture [Recovered/Resolved]
  - Multiple fractures [Recovered/Resolved]
  - Cervical vertebral fracture [Unknown]
  - Wheelchair user [Unknown]
  - Lower limb fracture [Recovered/Resolved]
  - Nervous system disorder [Not Recovered/Not Resolved]
  - Head injury [Recovered/Resolved]
  - Hypoaesthesia [Not Recovered/Not Resolved]
  - Pyrexia [Recovered/Resolved]
  - Spinal fracture [Unknown]
  - Memory impairment [Not Recovered/Not Resolved]
  - Cardiac failure congestive [Unknown]

NARRATIVE: CASE EVENT DATE: 20131113
